FAERS Safety Report 16228010 (Version 1)
Quarter: 2019Q2

REPORT INFORMATION
  Report Type: Spontaneous
  Country: US (occurrence: US)
  Receive Date: 20190318
  Receipt Date: 20190318
  Transmission Date: 20190711
  Serious: No
  Sender: FDA-Public Use
  Company Number: None

PATIENT
  Age: 66 Year
  Sex: Male

DRUGS (1)
  1. APIXABAN [Suspect]
     Active Substance: APIXABAN
     Indication: DEEP VEIN THROMBOSIS
     Route: 048
     Dates: start: 20180402, end: 20190306

REACTIONS (5)
  - Arthralgia [None]
  - Deep vein thrombosis [None]
  - Ligament sprain [None]
  - Phlebitis [None]
  - Fall [None]

NARRATIVE: CASE EVENT DATE: 20190306
